FAERS Safety Report 11044357 (Version 4)
Quarter: 2016Q1

REPORT INFORMATION
  Report Type: Spontaneous
  Country: FR (occurrence: FR)
  Receive Date: 20150417
  Receipt Date: 20160322
  Transmission Date: 20160525
  Serious: Yes (Hospitalization)
  Sender: FDA-Public Use
  Company Number: FR-PFIZER INC-2015128583

PATIENT
  Age: 87 Year
  Sex: Female

DRUGS (7)
  1. TOPALGIC LP [Concomitant]
     Active Substance: TRAMADOL
     Dosage: 200 MG, DAILY
     Route: 048
  2. ARTOTEC [Suspect]
     Active Substance: DICLOFENAC SODIUM\MISOPROSTOL
     Indication: BACK PAIN
     Dosage: UNK
     Route: 048
     Dates: start: 201411, end: 201412
  3. LASILIX /00032601/ [Interacting]
     Active Substance: FUROSEMIDE
     Indication: PULMONARY EMBOLISM
     Dosage: 40 MG, DAILY
     Route: 042
     Dates: start: 20141125, end: 20141201
  4. POTASSIUM [Interacting]
     Active Substance: POTASSIUM
     Indication: ACUTE PULMONARY OEDEMA
     Dosage: UNK
     Route: 048
     Dates: start: 201411, end: 201412
  5. DOLIPRANE [Concomitant]
     Active Substance: ACETAMINOPHEN
     Dosage: 1000 MG, AS NEEDED
     Route: 048
  6. INIPOMP [Concomitant]
     Active Substance: PANTOPRAZOLE SODIUM
     Dosage: 20 MG, DAILY
     Route: 048
  7. LASILIX /00032601/ [Interacting]
     Active Substance: FUROSEMIDE
     Indication: ACUTE PULMONARY OEDEMA
     Dosage: 40 MG, DAILY
     Route: 048
     Dates: start: 20141206

REACTIONS (5)
  - Acute kidney injury [Recovered/Resolved]
  - Drug interaction [Recovered/Resolved]
  - Atrioventricular block [Recovered/Resolved]
  - Bradycardia [Recovered/Resolved]
  - Hyperkalaemia [Recovered/Resolved]

NARRATIVE: CASE EVENT DATE: 20141201
